FAERS Safety Report 4674768-3 (Version None)
Quarter: 2005Q2

REPORT INFORMATION
  Report Type: 
  Country: None (occurrence: None)
  Receive Date: 20050526
  Receipt Date: 20050308
  Transmission Date: 20051028
  Serious: Yes (Disabling, Other)
  Sender: FDA-Public Use
  Company Number: 2005CG00595

PATIENT
  Age: 16695 Day
  Sex: Male
  Weight: 70 kg

DRUGS (2)
  1. NAROPIN [Suspect]
     Indication: LOCAL ANAESTHESIA
     Route: 053
     Dates: start: 20040524, end: 20040524
  2. CLONIDINE [Concomitant]
     Indication: LOCAL ANAESTHESIA
     Route: 053
     Dates: start: 20040524, end: 20040524

REACTIONS (1)
  - SCOTOMA [None]
